FAERS Safety Report 10337968 (Version 1)
Quarter: 2014Q3

REPORT INFORMATION
  Report Type: Report from Study
  Country: US (occurrence: US)
  Receive Date: 20140724
  Receipt Date: 20140724
  Transmission Date: 20150326
  Serious: Yes (Other)
  Sender: FDA-Public Use
  Company Number: PHEH2014US014597

PATIENT
  Sex: Female
  Weight: 47.17 kg

DRUGS (1)
  1. TOBI [Suspect]
     Active Substance: TOBRAMYCIN
     Indication: BRONCHIECTASIS
     Dosage: 300 MG, BID
     Route: 055

REACTIONS (3)
  - Joint dislocation [Recovering/Resolving]
  - Fall [Unknown]
  - Ankle fracture [Recovering/Resolving]
